FAERS Safety Report 25812965 (Version 4)
Quarter: 2025Q4

REPORT INFORMATION
  Report Type: Spontaneous
  Country: US (occurrence: US)
  Receive Date: 20250917
  Receipt Date: 20251109
  Transmission Date: 20260117
  Serious: Yes (Hospitalization)
  Sender: SANOFI AVENTIS
  Company Number: US-SA-2025SA277778

PATIENT
  Age: 74 Year
  Sex: Male

DRUGS (20)
  1. DUPIXENT [Suspect]
     Active Substance: DUPILUMAB
     Indication: General physical condition abnormal
     Dosage: 300 MG, QOW
     Route: 058
  2. DOXYCYCLINE [Concomitant]
     Active Substance: DOXYCYCLINE
  3. OXYCODONE HYDROCHLORIDE [Concomitant]
     Active Substance: OXYCODONE HYDROCHLORIDE
  4. TYLENOL [Concomitant]
     Active Substance: ACETAMINOPHEN
  5. AMIODARONE [Concomitant]
     Active Substance: AMIODARONE
  6. BRIMONIDINE [Concomitant]
     Active Substance: BRIMONIDINE TARTRATE
  7. DORZOLAMIDE [Concomitant]
     Active Substance: DORZOLAMIDE
  8. EZETIMIBE [Concomitant]
     Active Substance: EZETIMIBE
  9. FINASTERIDE [Concomitant]
     Active Substance: FINASTERIDE
  10. GABAPENTIN [Concomitant]
     Active Substance: GABAPENTIN
  11. LEVOTHYROXINE [Concomitant]
     Active Substance: LEVOTHYROXINE
  12. MONTELUKAST [Concomitant]
     Active Substance: MONTELUKAST
  13. NYAMYC [Concomitant]
     Active Substance: NYSTATIN
  14. OFLOXACIN [Concomitant]
     Active Substance: OFLOXACIN
  15. OMEPRAZOLE [Concomitant]
     Active Substance: OMEPRAZOLE
  16. PRAVASTATIN [Concomitant]
     Active Substance: PRAVASTATIN
  17. SODIUM BICARBONATE [Concomitant]
     Active Substance: SODIUM BICARBONATE
  18. SUCRALFATE [Concomitant]
     Active Substance: SUCRALFATE
  19. TOUJEO MAX [Concomitant]
     Active Substance: INSULIN GLARGINE
  20. XARELTO [Concomitant]
     Active Substance: RIVAROXABAN

REACTIONS (7)
  - Hospitalisation [Not Recovered/Not Resolved]
  - Oedema due to cardiac disease [Not Recovered/Not Resolved]
  - Platelet count decreased [Recovered/Resolved]
  - Gait inability [Not Recovered/Not Resolved]
  - Dyspnoea [Not Recovered/Not Resolved]
  - Haemoglobin decreased [Not Recovered/Not Resolved]
  - Product use in unapproved indication [Unknown]

NARRATIVE: CASE EVENT DATE: 20250101
